FAERS Safety Report 23950604 (Version 1)
Quarter: 2024Q2

REPORT INFORMATION
  Report Type: Spontaneous
  Country: US (occurrence: US)
  Receive Date: 20240607
  Receipt Date: 20240607
  Transmission Date: 20240716
  Serious: No
  Sender: FDA-Public Use
  Company Number: US-BAYER-2024A082940

PATIENT
  Age: 82 Year
  Sex: Male

DRUGS (4)
  1. MIRALAX [Suspect]
     Active Substance: POLYETHYLENE GLYCOL 3350
     Indication: Gastrointestinal disorder
     Dosage: CAP TO THE WHITE LEVEL WITH 6 OUNCES OF WATER, UNTIL IT WAS REAL CLEAR
     Route: 048
     Dates: start: 202404
  2. THERALITH [Concomitant]
     Indication: Renal lithiasis prophylaxis
     Route: 048
  3. MIDODRIN [Concomitant]
     Dosage: 5 MG, BID
  4. DIAZEPAM [Concomitant]
     Active Substance: DIAZEPAM
     Dosage: 10 MG 1 BEFORE GOING TO SLEEP AND THE OTHER HALF IF I WAKE TO GO THE BATHROOM

REACTIONS (1)
  - Product use issue [Not Recovered/Not Resolved]
